FAERS Safety Report 7678360-8 (Version None)
Quarter: 2011Q3

REPORT INFORMATION
  Report Type: 
  Country: None (occurrence: None)
  Receive Date: 20110811
  Receipt Date: 20110809
  Transmission Date: 20111222
  Serious: No
  Sender: FDA-Public Use
  Company Number: US-PFIZER INC-2011182650

PATIENT
  Sex: Female
  Weight: 104.31 kg

DRUGS (4)
  1. CELEXA [Concomitant]
     Dosage: 10 MG, UNK
  2. SUTENT [Suspect]
     Dosage: 25 MG DAILY
     Route: 048
     Dates: start: 20110718
  3. SUTENT [Suspect]
     Dosage: 37.5 MG DAILY
     Route: 048
  4. OMEPRAZOLE [Concomitant]
     Dosage: 10 MG, UNK

REACTIONS (1)
  - SOMNOLENCE [None]
